FAERS Safety Report 9656295 (Version 5)
Quarter: 2019Q1

REPORT INFORMATION
  Report Type: Spontaneous
  Country: US (occurrence: US)
  Receive Date: 20131030
  Receipt Date: 20190128
  Transmission Date: 20190418
  Serious: No
  Sender: FDA-Public Use
  Company Number: US-PFIZER INC-2013306417

PATIENT
  Age: 65 Year
  Sex: Female

DRUGS (6)
  1. ZOLOFT [Suspect]
     Active Substance: SERTRALINE HYDROCHLORIDE
     Dosage: UNK
  2. LISINOPRIL. [Suspect]
     Active Substance: LISINOPRIL
     Dosage: UNK
  3. LUNESTA [Suspect]
     Active Substance: ESZOPICLONE
     Dosage: UNK
  4. CALCIUM [Suspect]
     Active Substance: CALCIUM
     Dosage: UNK
  5. AMLODIPINE BESILATE [Suspect]
     Active Substance: AMLODIPINE BESYLATE
     Dosage: UNK
  6. COQ 10 [Suspect]
     Active Substance: UBIDECARENONE
     Dosage: UNK

REACTIONS (1)
  - Drug hypersensitivity [Unknown]
